FAERS Safety Report 8392753-5 (Version None)
Quarter: 2012Q1

REPORT INFORMATION
  Report Type: 
  Country: None (occurrence: None)
  Receive Date: 20120323
  Receipt Date: 20110318
  Transmission Date: 20120608
  Serious: Yes (Hospitalization, Other)
  Sender: FDA-Public Use
  Company Number: 163-21880-11032353

PATIENT
  Age: 59 Year
  Sex: Female

DRUGS (1)
  1. REVLIMID [Suspect]
     Indication: MULTIPLE MYELOMA
     Dosage: 5 MG, 1 IN 1 D, PO,10 MG, 1 IN 1 D, PO,  25 MG, DAILY, DAYS 1-14, PO
     Route: 048
     Dates: start: 20100801

REACTIONS (3)
  - BLOOD URINE PRESENT [None]
  - PLATELET COUNT DECREASED [None]
  - PAIN [None]
